FAERS Safety Report 7073246-4 (Version None)
Quarter: 2010Q4

REPORT INFORMATION
  Report Type: 
  Country: None (occurrence: None)
  Receive Date: 20101029
  Receipt Date: 20100514
  Transmission Date: 20110411
  Serious: No
  Sender: FDA-Public Use
  Company Number: A0859788A

PATIENT
  Age: 80 Year
  Sex: Male

DRUGS (7)
  1. ADVAIR DISKUS 100/50 [Suspect]
     Dosage: 1PUFF TWICE PER DAY
     Route: 055
     Dates: start: 20100322
  2. OMEPRAZOLE [Concomitant]
  3. FAMCICLOVIR [Concomitant]
  4. ASPIRIN [Concomitant]
  5. FINASTERIDE [Concomitant]
  6. SIMVASTATIN [Concomitant]
  7. UNSPECIFIED MEDICATION [Concomitant]

REACTIONS (3)
  - DYSPHONIA [None]
  - LARYNGITIS [None]
  - THERAPEUTIC RESPONSE UNEXPECTED [None]
